FAERS Safety Report 5805999-4 (Version None)
Quarter: 2008Q3

REPORT INFORMATION
  Report Type: 
  Country: None (occurrence: None)
  Receive Date: 20080710
  Receipt Date: 20080701
  Transmission Date: 20090109
  Serious: Yes (Hospitalization)
  Sender: FDA-Public Use
  Company Number: B0527941A

PATIENT
  Age: 12 Year
  Sex: Male

DRUGS (2)
  1. HYCAMTIN [Suspect]
     Indication: NEOPLASM
     Dosage: 1.15MG PER DAY
     Route: 042
     Dates: start: 20071015, end: 20071019
  2. TEMOZOLOMIDE [Suspect]
     Indication: NEOPLASM
     Route: 048
     Dates: start: 20071015, end: 20071019

REACTIONS (3)
  - ASTHENIA [None]
  - FEBRILE BONE MARROW APLASIA [None]
  - PRODUCTIVE COUGH [None]
